FAERS Safety Report 6937716-9 (Version None)
Quarter: 2010Q3

REPORT INFORMATION
  Report Type: 
  Country: None (occurrence: None)
  Receive Date: 20100820
  Receipt Date: 20100820
  Transmission Date: 20110219
  Serious: No
  Sender: FDA-Public Use
  Company Number: None

PATIENT
  Age: 60 Year
  Sex: Male
  Weight: 72.5755 kg

DRUGS (1)
  1. CIALIS [Suspect]

REACTIONS (6)
  - DEAFNESS UNILATERAL [None]
  - DIZZINESS [None]
  - EAR INFECTION [None]
  - HEADACHE [None]
  - NO THERAPEUTIC RESPONSE [None]
  - VERTIGO [None]
